FAERS Safety Report 9797872 (Version 1)
Quarter: 2014Q1

REPORT INFORMATION
  Report Type: Spontaneous
  Country: US (occurrence: US)
  Receive Date: 20140106
  Receipt Date: 20140106
  Transmission Date: 20141002
  Serious: Yes (Hospitalization)
  Sender: FDA-Public Use
  Company Number: US-BAYER-2014-001582

PATIENT
  Age: 21 Year
  Sex: Female
  Weight: 94.79 kg

DRUGS (5)
  1. YAZ [Suspect]
  2. YASMIN [Suspect]
  3. IBUPROFEN [Concomitant]
     Dosage: 800 MG, UNK
  4. ARIXTRA [Concomitant]
  5. SINGULAIR [Concomitant]

REACTIONS (1)
  - Pulmonary embolism [None]
